FAERS Safety Report 11921517 (Version 1)
Quarter: 2016Q1

REPORT INFORMATION
  Report Type: Spontaneous
  Country: CN (occurrence: CN)
  Receive Date: 20160115
  Receipt Date: 20160115
  Transmission Date: 20160526
  Serious: Yes (Death, Hospitalization, Other)
  Sender: FDA-Public Use
  Company Number: CN-SA-2016SA004612

PATIENT
  Age: 39 Year
  Sex: Female

DRUGS (11)
  1. ISONIAZID. [Suspect]
     Active Substance: ISONIAZID
     Indication: ANTIBIOTIC PROPHYLAXIS
     Route: 065
     Dates: start: 2013
  2. STREPTOMYCIN [Suspect]
     Active Substance: STREPTOMYCIN\STREPTOMYCIN SULFATE
     Indication: TUBERCULOSIS
     Route: 065
  3. ETHAMBUTOL [Suspect]
     Active Substance: ETHAMBUTOL HYDROCHLORIDE
     Indication: ANTIBIOTIC PROPHYLAXIS
     Route: 065
     Dates: start: 2013
  4. RAPAMUNE [Concomitant]
     Active Substance: SIROLIMUS
     Indication: IMMUNOSUPPRESSION
  5. ETHAMBUTOL [Suspect]
     Active Substance: ETHAMBUTOL HYDROCHLORIDE
     Indication: ANTIBIOTIC PROPHYLAXIS
     Route: 065
  6. RIFAMPICIN [Suspect]
     Active Substance: RIFAMPIN
     Indication: ANTIBIOTIC PROPHYLAXIS
     Route: 065
     Dates: start: 2013
  7. METHYLPREDNISOLONE. [Concomitant]
     Active Substance: METHYLPREDNISOLONE
     Indication: IMMUNOSUPPRESSION
  8. PYRAZINAMIDE. [Suspect]
     Active Substance: PYRAZINAMIDE
     Indication: ANTIBIOTIC PROPHYLAXIS
     Route: 065
     Dates: start: 2013
  9. MOXIFLOXACIN HYDROCHLORIDE. [Suspect]
     Active Substance: MOXIFLOXACIN HYDROCHLORIDE
     Indication: TUBERCULOSIS
     Route: 065
  10. CIPROFLOXACIN. [Suspect]
     Active Substance: CIPROFLOXACIN
     Indication: TUBERCULOSIS
     Route: 065
  11. TACROLIMUS. [Concomitant]
     Active Substance: TACROLIMUS
     Indication: IMMUNOSUPPRESSION
     Dates: start: 2013

REACTIONS (23)
  - Decreased appetite [Not Recovered/Not Resolved]
  - Ammonia increased [Not Recovered/Not Resolved]
  - Ischaemia [Fatal]
  - Acute hepatic failure [Not Recovered/Not Resolved]
  - Blood bilirubin increased [Not Recovered/Not Resolved]
  - Bilirubin conjugated increased [Not Recovered/Not Resolved]
  - Bile duct obstruction [Not Recovered/Not Resolved]
  - Drug-induced liver injury [Not Recovered/Not Resolved]
  - Fatigue [Not Recovered/Not Resolved]
  - Biopsy liver abnormal [Not Recovered/Not Resolved]
  - Computerised tomogram abnormal [Not Recovered/Not Resolved]
  - Hepatic necrosis [Not Recovered/Not Resolved]
  - Blood bilirubin unconjugated increased [Not Recovered/Not Resolved]
  - Prothrombin time prolonged [Not Recovered/Not Resolved]
  - Jaundice [Not Recovered/Not Resolved]
  - Activated partial thromboplastin time prolonged [Not Recovered/Not Resolved]
  - Cholestasis [Not Recovered/Not Resolved]
  - Cholangitis [Fatal]
  - Aspartate aminotransferase increased [Not Recovered/Not Resolved]
  - Coagulopathy [Not Recovered/Not Resolved]
  - Hepatic encephalopathy [Not Recovered/Not Resolved]
  - Peritonitis bacterial [Unknown]
  - Alanine aminotransferase increased [Not Recovered/Not Resolved]

NARRATIVE: CASE EVENT DATE: 2013
